FAERS Safety Report 19186821 (Version 2)
Quarter: 2021Q4

REPORT INFORMATION
  Report Type: Spontaneous
  Country: US (occurrence: None)
  Receive Date: 20210428
  Receipt Date: 20211207
  Transmission Date: 20220304
  Serious: No
  Sender: FDA-Public Use
  Company Number: 2021A286872

PATIENT
  Sex: Female
  Weight: 81.6 kg

DRUGS (1)
  1. LYNPARZA [Suspect]
     Active Substance: OLAPARIB
     Indication: Breast cancer female
     Dosage: 100ML/KG TWO TIMES A DAY
     Route: 048
     Dates: start: 20200904

REACTIONS (12)
  - Pyrexia [Unknown]
  - Epistaxis [Unknown]
  - Hot flush [Unknown]
  - Arthralgia [Unknown]
  - Insomnia [Unknown]
  - Constipation [Unknown]
  - Thrombosis [Unknown]
  - Rash macular [Unknown]
  - Mouth ulceration [Unknown]
  - Nausea [Unknown]
  - Taste disorder [Unknown]
  - Diarrhoea [Unknown]
